FAERS Safety Report 6127716-3 (Version None)
Quarter: 2009Q1

REPORT INFORMATION
  Report Type: 
  Country: None (occurrence: None)
  Receive Date: 20090323
  Receipt Date: 20090218
  Transmission Date: 20090719
  Serious: No
  Sender: FDA-Public Use
  Company Number: US-BAYER-200913754NA

PATIENT
  Age: 38 Year
  Sex: Female

DRUGS (3)
  1. YAZ [Suspect]
     Indication: UTERINE LEIOMYOMA
     Route: 048
     Dates: start: 20071001
  2. TYLENOL [Concomitant]
     Indication: UTERINE PAIN
  3. ALEVE [Concomitant]
     Indication: UTERINE PAIN

REACTIONS (2)
  - ABNORMAL WITHDRAWAL BLEEDING [None]
  - NO ADVERSE EVENT [None]
